FAERS Safety Report 8791397 (Version 1)
Quarter: 2012Q4

REPORT INFORMATION
  Report Type: 
  Country: US (occurrence: None)
  Receive Date: 20120911
  Receipt Date: 20120911
  Transmission Date: 20130627
  Serious: Yes (Hospitalization)
  Sender: FDA-Public Use
  Company Number: JPI-P-024933

PATIENT
  Age: 47 Year
  Sex: Female
  Weight: 78.47 kg

DRUGS (18)
  1. XYREM [Suspect]
     Indication: DRUG USE FOR UNKNOWN INDICATION
     Dates: start: 20050721
  2. XYREM [Suspect]
     Indication: DRUG USE FOR UNKNOWN INDICATION
     Route: 048
  3. XYREM [Suspect]
     Indication: DRUG USE FOR UNKNOWN INDICATION
     Dates: start: 20050907
  4. XYREM [Suspect]
     Indication: DRUG USE FOR UNKNOWN INDICATION
     Route: 048
  5. XYREM [Suspect]
     Indication: DRUG USE FOR UNKNOWN INDICATION
     Route: 048
  6. CARBAMAZEPINE [Concomitant]
  7. VITAMIN D3 [Concomitant]
  8. CITALOPRAM [Concomitant]
  9. VITAMIN B12 [Concomitant]
  10. DOXEPIN [Concomitant]
  11. GABAPENTIN [Concomitant]
  12. LEVOTHYROXINE [Concomitant]
  13. MIRTAZAPINE [Concomitant]
  14. MULTIVITAMIN [Concomitant]
  15. RABEPRAZOLE [Concomitant]
  16. RAMELTEON [Concomitant]
  17. TRAZODONE [Concomitant]
  18. ENOXAPARIN [Concomitant]

REACTIONS (2)
  - Fall [None]
  - Lower limb fracture [None]
